FAERS Safety Report 14434884 (Version 4)
Quarter: 2018Q1

REPORT INFORMATION
  Report Type: Spontaneous
  Country: FR (occurrence: FR)
  Receive Date: 20180125
  Receipt Date: 20180315
  Transmission Date: 20180509
  Serious: Yes (Death, Hospitalization)
  Sender: FDA-Public Use
  Company Number: FR-SUN PHARMACEUTICAL INDUSTRIES LTD-2018R1-161269

PATIENT
  Age: 87 Year
  Sex: Female
  Weight: 32 kg

DRUGS (7)
  1. ANAFRANIL [Suspect]
     Active Substance: CLOMIPRAMINE HYDROCHLORIDE
     Indication: DEPRESSION
     Dosage: 25 MG, QD
     Route: 042
     Dates: start: 20170621, end: 20170711
  2. SEROPRAM (CITALOPRAM HYDROCHLORIDE) [Suspect]
     Active Substance: CITALOPRAM HYDROCHLORIDE
     Indication: DEPRESSION
     Dosage: 20 MG, DAILY
     Route: 042
     Dates: start: 20170615, end: 20170621
  3. VENLAFAXINE [Suspect]
     Active Substance: VENLAFAXINE HYDROCHLORIDE
     Indication: DEPRESSION
     Dosage: UNK
     Route: 048
     Dates: start: 2017, end: 20170719
  4. MIANSERINE (CHLORHYDRATE DE) [Suspect]
     Active Substance: MIANSERIN HYDROCHLORIDE
     Indication: DEPRESSION
     Dosage: UNK
     Route: 048
     Dates: start: 201705
  5. SEROPRAM (CITALOPRAM HYDROCHLORIDE) [Suspect]
     Active Substance: CITALOPRAM HYDROCHLORIDE
     Indication: DEPRESSION
     Dosage: 20 MG, QD
     Route: 042
     Dates: start: 20170615, end: 20170621
  6. MIANSERINE [Suspect]
     Active Substance: MIANSERIN HYDROCHLORIDE
     Indication: DEPRESSION
     Dosage: UNK
     Route: 048
     Dates: start: 201705, end: 20170719
  7. HALDOL [Suspect]
     Active Substance: HALOPERIDOL
     Indication: DEPRESSION
     Dosage: UNK
     Route: 048
     Dates: start: 201705, end: 20170719

REACTIONS (2)
  - Vitreous haemorrhage [Recovered/Resolved]
  - Acquired haemophilia [Recovered/Resolved]

NARRATIVE: CASE EVENT DATE: 20170716
